FAERS Safety Report 7728011-9 (Version None)
Quarter: 2011Q3

REPORT INFORMATION
  Report Type: 
  Country: None (occurrence: None)
  Receive Date: 20110905
  Receipt Date: 20110825
  Transmission Date: 20111222
  Serious: No
  Sender: FDA-Public Use
  Company Number: US-BIOGENIDEC-2011BI033122

PATIENT
  Sex: Female

DRUGS (3)
  1. AVONEX [Concomitant]
     Indication: MULTIPLE SCLEROSIS
     Route: 030
     Dates: start: 20050701
  2. TYSABRI [Suspect]
     Indication: MULTIPLE SCLEROSIS
     Route: 042
     Dates: start: 20110617
  3. TYSABRI [Suspect]
     Route: 042
     Dates: start: 20070928, end: 20090119

REACTIONS (3)
  - POST PROCEDURAL INFECTION [None]
  - LIGAMENT RUPTURE [None]
  - MENISCUS LESION [None]
